FAERS Safety Report 9785761 (Version 1)
Quarter: 2013Q4

REPORT INFORMATION
  Report Type: Spontaneous
  Country: BR (occurrence: None)
  Receive Date: 20131223
  Receipt Date: 20131223
  Transmission Date: 20140711
  Serious: Yes (Hospitalization, Other)
  Sender: FDA-Public Use
  Company Number: COL_14823_2013

PATIENT
  Sex: Female

DRUGS (1)
  1. COLGATE 2IN1 OXYGEN WHITENING COOL MINT FLUORIDE [Suspect]
     Indication: PRODUCT USED FOR UNKNOWN INDICATION
     Dosage: NI ONCE AT NIGHT
     Route: 048
     Dates: start: 20131127, end: 20131127

REACTIONS (2)
  - Lip swelling [None]
  - Swelling face [None]
